FAERS Safety Report 23292045 (Version 1)
Quarter: 2023Q4

REPORT INFORMATION
  Report Type: Other
  Country: GB (occurrence: None)
  Receive Date: 20231213
  Receipt Date: 20231213
  Transmission Date: 20240109
  Serious: Yes (Other)
  Sender: FDA-Public Use
  Company Number: GB-ROCHE-2495462

PATIENT
  Age: 84 Year
  Sex: Male

DRUGS (8)
  1. TOCILIZUMAB [Suspect]
     Active Substance: TOCILIZUMAB
     Indication: Rheumatoid arthritis
     Dosage: EXPIRY DATE CONFLICTING AS 20/2025
     Route: 058
     Dates: start: 20171004
  2. TOCILIZUMAB [Suspect]
     Active Substance: TOCILIZUMAB
     Route: 058
     Dates: start: 201710
  3. TOCILIZUMAB [Suspect]
     Active Substance: TOCILIZUMAB
     Route: 058
     Dates: start: 2008
  4. TOCILIZUMAB [Suspect]
     Active Substance: TOCILIZUMAB
     Route: 058
     Dates: start: 2017
  5. TOCILIZUMAB [Suspect]
     Active Substance: TOCILIZUMAB
     Route: 058
     Dates: start: 2019
  6. PREDNISOLONE [Concomitant]
     Active Substance: PREDNISOLONE
  7. CALCIUM [Concomitant]
     Active Substance: CALCIUM
  8. COCODAMOL [Concomitant]
     Active Substance: ACETAMINOPHEN\CODEINE PHOSPHATE
     Indication: Pain

REACTIONS (10)
  - Infection [Unknown]
  - COVID-19 [Unknown]
  - Upper limb fracture [Unknown]
  - Localised infection [Unknown]
  - Joint dislocation [Unknown]
  - Arthropod sting [Unknown]
  - Skin ulcer [Unknown]
  - Muscle disorder [Unknown]
  - Joint dislocation [Unknown]
  - Infection [Unknown]
